FAERS Safety Report 4422016-1 (Version None)
Quarter: 2004Q3

REPORT INFORMATION
  Report Type: 
  Country: None (occurrence: None)
  Receive Date: 20040709
  Receipt Date: 20040318
  Transmission Date: 20050211
  Serious: Yes (Other)
  Sender: FDA-Public Use
  Company Number: US-SHR-04-022765

PATIENT
  Age: 64 Year
  Sex: Female

DRUGS (1)
  1. ULTRAVIST 300 [Suspect]
     Indication: COMPUTERISED TOMOGRAM
     Dosage: 86 ML, 1 DOSE, INTRAVENOUS
     Route: 042
     Dates: start: 20040318, end: 20040318

REACTIONS (4)
  - BURNING SENSATION [None]
  - GENERALISED ERYTHEMA [None]
  - NAUSEA [None]
  - THROAT TIGHTNESS [None]
